FAERS Safety Report 16473430 (Version 1)
Quarter: 2019Q2

REPORT INFORMATION
  Report Type: Spontaneous
  Country: US (occurrence: US)
  Receive Date: 20190625
  Receipt Date: 20190625
  Transmission Date: 20190711
  Serious: Yes (Hospitalization)
  Sender: FDA-Public Use
  Company Number: US-PFIZER INC-2019270350

PATIENT
  Age: 72 Year
  Sex: Female

DRUGS (1)
  1. IBRANCE [Suspect]
     Active Substance: PALBOCICLIB
     Indication: BREAST CANCER METASTATIC
     Dosage: 125 MG, UNK

REACTIONS (7)
  - Urosepsis [Unknown]
  - Fatigue [Unknown]
  - Neoplasm progression [Unknown]
  - Peripheral swelling [Unknown]
  - Back pain [Unknown]
  - Nervousness [Unknown]
  - Anxiety [Unknown]
